FAERS Safety Report 18245379 (Version 2)
Quarter: 2020Q4

REPORT INFORMATION
  Report Type: Spontaneous
  Country: US (occurrence: US)
  Receive Date: 20200908
  Receipt Date: 20201005
  Transmission Date: 20210113
  Serious: No
  Sender: FDA-Public Use
  Company Number: US-ALKERMES INC.-ALK-2020-003731

PATIENT
  Sex: Female
  Weight: 68.03 kg

DRUGS (1)
  1. NO COMPANY PRODUCT [Suspect]
     Active Substance: UNSPECIFIED INGREDIENT
     Dosage: NO DRUG ADMINISTERED

REACTIONS (1)
  - Alcohol poisoning [Not Recovered/Not Resolved]
